FAERS Safety Report 15609047 (Version 3)
Quarter: 2018Q4

REPORT INFORMATION
  Report Type: Spontaneous
  Country: CZ (occurrence: CZ)
  Receive Date: 20181112
  Receipt Date: 20181224
  Transmission Date: 20190205
  Serious: Yes (Disabling, Other)
  Sender: FDA-Public Use
  Company Number: CZ-TAKEDA-2018TUS032484

PATIENT
  Age: 33 Year
  Sex: Male

DRUGS (6)
  1. ICLUSIG [Suspect]
     Active Substance: PONATINIB
     Indication: B-CELL TYPE ACUTE LEUKAEMIA
     Dosage: 30 MG, QD
     Route: 048
     Dates: start: 20160815, end: 201609
  2. ICLUSIG [Suspect]
     Active Substance: PONATINIB
     Dosage: 30 MG, QD
     Route: 048
     Dates: end: 20180912
  3. AUGMENTIN [Concomitant]
     Active Substance: AMOXICILLIN\CLAVULANATE POTASSIUM
     Indication: OTITIS MEDIA CHRONIC
     Dosage: UNK
     Route: 065
     Dates: start: 20180831, end: 20180901
  4. ICLUSIG [Suspect]
     Active Substance: PONATINIB
     Dosage: 15 MG, QD
     Route: 048
     Dates: start: 201609
  5. REVATIO [Concomitant]
     Active Substance: SILDENAFIL CITRATE
     Indication: PULMONARY HYPERTENSION
     Dosage: 20 MG, TID
     Route: 048
     Dates: start: 20150630
  6. KIOVIG [Suspect]
     Active Substance: HUMAN IMMUNOGLOBULIN G
     Indication: B-CELL TYPE ACUTE LEUKAEMIA
     Dosage: UNK
     Route: 065
     Dates: start: 2017

REACTIONS (13)
  - Meningitis pneumococcal [Unknown]
  - Cerebral ischaemia [Not Recovered/Not Resolved]
  - Neuromuscular toxicity [Unknown]
  - Headache [Unknown]
  - Aphasia [Not Recovered/Not Resolved]
  - Paraplegia [Recovered/Resolved with Sequelae]
  - Pneumonia [Unknown]
  - Drug hypersensitivity [Unknown]
  - Central nervous system leukaemia [Unknown]
  - Blindness unilateral [Unknown]
  - Hemiparaesthesia [Unknown]
  - Restlessness [Unknown]
  - Incorrect dose administered [Unknown]

NARRATIVE: CASE EVENT DATE: 20161214
